FAERS Safety Report 21591724 (Version 1)
Quarter: 2022Q4

REPORT INFORMATION
  Report Type: Spontaneous
  Country: DE (occurrence: DE)
  Receive Date: 20221114
  Receipt Date: 20221114
  Transmission Date: 20230113
  Serious: Yes (Other)
  Sender: FDA-Public Use
  Company Number: DE-009507513-2211DEU003505

PATIENT
  Age: 32 Year
  Sex: Male

DRUGS (1)
  1. PEMBROLIZUMAB [Suspect]
     Active Substance: PEMBROLIZUMAB
     Indication: Malignant melanoma stage III
     Dosage: UNK UNK, CYCLICAL

REACTIONS (3)
  - Polyserositis [Recovered/Resolved]
  - Immune-mediated hypothyroidism [Unknown]
  - Immune thrombocytopenia [Unknown]
